FAERS Safety Report 23422161 (Version 1)
Quarter: 2024Q1

REPORT INFORMATION
  Report Type: Spontaneous
  Country: US (occurrence: US)
  Receive Date: 20240119
  Receipt Date: 20240119
  Transmission Date: 20240410
  Serious: Yes (Life-Threatening, Hospitalization)
  Sender: FDA-Public Use
  Company Number: US-TEVA-VS-3134256

PATIENT
  Age: 35 Year

DRUGS (12)
  1. AZITHROMYCIN [Suspect]
     Active Substance: AZITHROMYCIN
     Indication: COVID-19 pneumonia
     Route: 065
  2. KEPPRA [Suspect]
     Active Substance: LEVETIRACETAM
     Indication: Seizure prophylaxis
     Route: 065
  3. NITRIC OXIDE [Suspect]
     Active Substance: NITRIC OXIDE
     Indication: Acute respiratory distress syndrome
     Dosage: 10 PPM
     Route: 055
  4. NITRIC OXIDE [Suspect]
     Active Substance: NITRIC OXIDE
     Indication: Acute respiratory distress syndrome
     Dosage: 20 PPM
     Route: 055
  5. PROPOFOL [Suspect]
     Active Substance: PROPOFOL
     Indication: Sedative therapy
     Route: 065
  6. REMDESIVIR [Suspect]
     Active Substance: REMDESIVIR
     Indication: COVID-19 pneumonia
     Route: 065
  7. FENTANYL [Suspect]
     Active Substance: FENTANYL\FENTANYL CITRATE
     Indication: Sedative therapy
     Route: 065
  8. NIMBEX [Suspect]
     Active Substance: CISATRACURIUM BESYLATE
     Indication: Sedative therapy
     Route: 065
  9. DEXAMETHASONE [Suspect]
     Active Substance: DEXAMETHASONE
     Indication: COVID-19 pneumonia
     Route: 065
  10. ROCEPHIN [Suspect]
     Active Substance: CEFTRIAXONE SODIUM
     Indication: COVID-19 pneumonia
     Route: 065
  11. HEPARIN [Suspect]
     Active Substance: HEPARIN SODIUM
     Indication: Anticoagulant therapy
     Dosage: RECEIVED HEPARIN DRIP OF 10 UNITS/KG/H.
     Route: 065
  12. HEPARIN [Suspect]
     Active Substance: HEPARIN SODIUM
     Indication: Anticoagulant therapy
     Dosage: 50 UNITS/KG
     Route: 065

REACTIONS (4)
  - Drug ineffective [Unknown]
  - Live birth [Unknown]
  - Maternal exposure during pregnancy [Unknown]
  - Off label use [Unknown]
